FAERS Safety Report 6348342-7 (Version None)
Quarter: 2009Q3

REPORT INFORMATION
  Report Type: 
  Country: None (occurrence: None)
  Receive Date: 20090908
  Receipt Date: 20090820
  Transmission Date: 20100115
  Serious: Yes (Death)
  Sender: FDA-Public Use
  Company Number: 2008AL009189

PATIENT
  Age: 60 Year
  Sex: Female
  Weight: 113.3993 kg

DRUGS (13)
  1. DIGOXIN [Suspect]
     Dosage: PO
     Route: 048
  2. MULTI-VITAMIN [Concomitant]
  3. LANTUS [Concomitant]
  4. LOPRESSOR [Concomitant]
  5. GLUCOPHAGE [Concomitant]
  6. LISINOPRIL [Concomitant]
  7. HALPRIN [Concomitant]
  8. INSULIN [Concomitant]
  9. TYLENOL (CAPLET) [Concomitant]
  10. LASIX [Concomitant]
  11. NIPRIDE [Concomitant]
  12. DOPAMINE HCL [Concomitant]
  13. AMIODARONE HCL [Concomitant]

REACTIONS (7)
  - ATELECTASIS [None]
  - ATRIAL FIBRILLATION [None]
  - BLOOD PRESSURE INCREASED [None]
  - CARDIAC FAILURE CONGESTIVE [None]
  - INJURY [None]
  - PAIN [None]
  - VENTRICULAR FIBRILLATION [None]
